FAERS Safety Report 13142247 (Version 1)
Quarter: 2017Q1

REPORT INFORMATION
  Report Type: Spontaneous
  Country: US (occurrence: US)
  Receive Date: 20170123
  Receipt Date: 20170123
  Transmission Date: 20170428
  Serious: No
  Sender: FDA-Public Use
  Company Number: US-PURDUE-USA-2016-0133407

PATIENT
  Sex: Female
  Weight: 64.41 kg

DRUGS (1)
  1. DILAUDID [Suspect]
     Active Substance: HYDROMORPHONE HYDROCHLORIDE
     Indication: NERVE INJURY
     Dosage: UNK
     Route: 042
     Dates: start: 201512

REACTIONS (1)
  - Drug ineffective [Unknown]
